FAERS Safety Report 8837912 (Version 1)
Quarter: 2012Q4

REPORT INFORMATION
  Report Type: 
  Country: US (occurrence: US)
  Receive Date: 20121012
  Receipt Date: 20121012
  Transmission Date: 20130627
  Serious: Yes (Other)
  Sender: FDA-Public Use
  Company Number: US-ROCHE-1136597

PATIENT
  Sex: Female
  Weight: 73.09 kg

DRUGS (3)
  1. ACTEMRA [Suspect]
     Indication: RHEUMATOID ARTHRITIS
     Route: 042
     Dates: start: 20111103, end: 201207
  2. PREDNISONE [Concomitant]
  3. ARAVA [Concomitant]

REACTIONS (2)
  - Tendon rupture [Unknown]
  - Tendon rupture [Unknown]
